FAERS Safety Report 4953278-X (Version None)
Quarter: 2006Q1

REPORT INFORMATION
  Report Type: 
  Country: None (occurrence: None)
  Receive Date: 20060324
  Receipt Date: 20050317
  Transmission Date: 20060701
  Serious: Yes (Hospitalization)
  Sender: FDA-Public Use
  Company Number: US-MERCK-0503USA03422

PATIENT
  Age: 61 Year
  Sex: Female
  Weight: 134 kg

DRUGS (26)
  1. VIOXX [Suspect]
     Indication: ARTHRITIS
     Route: 048
     Dates: start: 20000523, end: 20010111
  2. VIOXX [Suspect]
     Route: 048
     Dates: start: 20010111, end: 20010208
  3. VIOXX [Suspect]
     Route: 048
     Dates: start: 20010208, end: 20010718
  4. VIOXX [Suspect]
     Route: 048
     Dates: start: 20010718, end: 20031001
  5. VIOXX [Suspect]
     Indication: PAIN
     Route: 048
     Dates: start: 20000523, end: 20010111
  6. VIOXX [Suspect]
     Route: 048
     Dates: start: 20010111, end: 20010208
  7. VIOXX [Suspect]
     Route: 048
     Dates: start: 20010208, end: 20010718
  8. VIOXX [Suspect]
     Route: 048
     Dates: start: 20010718, end: 20031001
  9. PSEUDOEPHEDRINE [Concomitant]
     Route: 065
  10. FUROSEMIDE [Concomitant]
     Route: 065
  11. QUININE SULFATE [Concomitant]
     Route: 065
  12. QUININE SULFATE [Concomitant]
     Route: 065
  13. HYDROCODONE HYDROCHLORIDE [Concomitant]
     Route: 065
  14. AMOXICILLIN [Concomitant]
     Route: 065
  15. NEOMYCIN [Concomitant]
     Route: 065
  16. LORAZEPAM [Concomitant]
     Route: 065
  17. FLUOCINONIDE [Concomitant]
     Route: 065
  18. SPECTAZOLE [Concomitant]
     Route: 065
  19. LOTENSIN [Concomitant]
     Route: 065
  20. NEXIUM [Concomitant]
     Route: 065
  21. MECLIZINE [Concomitant]
     Route: 065
  22. TRIAMCINOLONE [Concomitant]
     Route: 065
  23. CIPRO [Concomitant]
     Route: 065
  24. ZYRTEC [Concomitant]
     Route: 065
  25. BIAXIN [Concomitant]
     Route: 065
  26. TRIMOX [Concomitant]
     Route: 065

REACTIONS (33)
  - ANAEMIA [None]
  - ARTHRALGIA [None]
  - ARTHROPATHY [None]
  - CARDIAC DISORDER [None]
  - CARDIAC FAILURE CONGESTIVE [None]
  - CARDIOMEGALY [None]
  - CARDIOVASCULAR DISORDER [None]
  - CHEST PAIN [None]
  - COAGULOPATHY [None]
  - COUGH [None]
  - DEPRESSION [None]
  - DIARRHOEA [None]
  - DYSPNOEA [None]
  - GASTRIC ULCER [None]
  - GASTRITIS [None]
  - GASTROINTESTINAL ULCER HAEMORRHAGE [None]
  - GASTROOESOPHAGEAL REFLUX DISEASE [None]
  - HEPATITIS C [None]
  - HYPERBILIRUBINAEMIA [None]
  - MELAENA [None]
  - MUSCULOSKELETAL CHEST PAIN [None]
  - NECK PAIN [None]
  - NEPHROLITHIASIS [None]
  - OEDEMA PERIPHERAL [None]
  - PYELONEPHRITIS ACUTE [None]
  - PYREXIA [None]
  - RECTAL HAEMORRHAGE [None]
  - RESPIRATORY DISTRESS [None]
  - ROAD TRAFFIC ACCIDENT [None]
  - SEPSIS [None]
  - SHOULDER PAIN [None]
  - UPPER GASTROINTESTINAL HAEMORRHAGE [None]
  - URINARY TRACT INFECTION [None]
